FAERS Safety Report 20807674 (Version 1)
Quarter: 2022Q2

REPORT INFORMATION
  Report Type: Spontaneous
  Country: US (occurrence: None)
  Receive Date: 20220509
  Receipt Date: 20220509
  Transmission Date: 20220720
  Serious: Yes (unspecified)
  Sender: FDA-Public Use
  Company Number: None

PATIENT
  Age: 55 Year
  Sex: Male

DRUGS (2)
  1. CEFAZOLIN\DEXTROSE [Suspect]
     Active Substance: CEFAZOLIN\DEXTROSE
     Indication: Antibiotic prophylaxis
     Dates: start: 20220120, end: 20220120
  2. ROCURONIUM BROMIDE [Suspect]
     Active Substance: ROCURONIUM BROMIDE
     Indication: Antibiotic prophylaxis
     Dates: start: 20220120, end: 20220120

REACTIONS (5)
  - Urticaria [None]
  - Bronchospasm [None]
  - Rash [None]
  - Urticaria [None]
  - Pruritus [None]

NARRATIVE: CASE EVENT DATE: 20220120
